FAERS Safety Report 13438522 (Version 1)
Quarter: 2017Q2

REPORT INFORMATION
  Report Type: Spontaneous
  Country: JP (occurrence: JP)
  Receive Date: 20170413
  Receipt Date: 20170413
  Transmission Date: 20170830
  Serious: Yes (Life-Threatening, Other)
  Sender: FDA-Public Use
  Company Number: JP-PFIZER INC-2017007892

PATIENT
  Age: 74 Year
  Sex: Female

DRUGS (2)
  1. CARBOPLATIN. [Suspect]
     Active Substance: CARBOPLATIN
     Indication: METASTATIC MALIGNANT MELANOMA
     Dosage: UNK (AREA UNDER THE CURVE OF 2)
  2. PACLITAXEL. [Suspect]
     Active Substance: PACLITAXEL
     Indication: METASTATIC MALIGNANT MELANOMA
     Dosage: 100 MG/M2, UNK

REACTIONS (1)
  - Intestinal ischaemia [Recovered/Resolved]
